FAERS Safety Report 19649118 (Version 1)
Quarter: 2021Q3

REPORT INFORMATION
  Report Type: Report from Study
  Country: NL (occurrence: NL)
  Receive Date: 20210803
  Receipt Date: 20210803
  Transmission Date: 20211014
  Serious: Yes (Hospitalization)
  Sender: FDA-Public Use
  Company Number: NL-ROCHE-2879543

PATIENT
  Age: 79 Year
  Sex: Male

DRUGS (2)
  1. OBINUTUZUMAB. [Suspect]
     Active Substance: OBINUTUZUMAB
     Indication: CHRONIC LYMPHOCYTIC LEUKAEMIA
     Dosage: LAST DOSE PRIOR TO SAE : 06/JUL/2021?CYCLE 1: (100 MG, D1 + 900 MG, D2) OR 1000 MG, D1; 1000 MG, D8
     Route: 042
  2. VENETOCLAX. [Suspect]
     Active Substance: VENETOCLAX
     Indication: CHRONIC LYMPHOCYTIC LEUKAEMIA
     Dosage: 6 CYCLES
     Route: 048

REACTIONS (1)
  - Blood lactate dehydrogenase increased [Recovered/Resolved with Sequelae]

NARRATIVE: CASE EVENT DATE: 20210706
